FAERS Safety Report 8117775-0 (Version None)
Quarter: 2012Q1

REPORT INFORMATION
  Report Type: 
  Country: None (occurrence: None)
  Receive Date: 20120131
  Receipt Date: 20110509
  Transmission Date: 20120608
  Serious: Yes (Hospitalization)
  Sender: FDA-Public Use
  Company Number: 2011002310

PATIENT
  Age: 5 Year
  Sex: Male

DRUGS (4)
  1. CLOBAZAM [Concomitant]
  2. VALPROATE SODIUM [Concomitant]
  3. ERYTHROMYCIN [Suspect]
     Indication: PNEUMONIA MYCOPLASMAL
  4. CEFOTAXIME [Suspect]
     Indication: PNEUMONIA MYCOPLASMAL

REACTIONS (12)
  - STATUS EPILEPTICUS [None]
  - LEARNING DISORDER [None]
  - BRAIN OEDEMA [None]
  - ENCEPHALOPATHY [None]
  - EPILEPSY [None]
  - MOVEMENT DISORDER [None]
  - COGNITIVE DISORDER [None]
  - HYPOTONIA [None]
  - AKINESIA [None]
  - GRAND MAL CONVULSION [None]
  - DYSTONIA [None]
  - APHASIA [None]
